FAERS Safety Report 24088669 (Version 1)
Quarter: 2024Q3

REPORT INFORMATION
  Report Type: Spontaneous
  Country: DE (occurrence: DE)
  Receive Date: 20240715
  Receipt Date: 20240715
  Transmission Date: 20241016
  Serious: Yes (Other)
  Sender: ROCHE
  Company Number: None

PATIENT
  Sex: Female

DRUGS (8)
  1. MABTHERA [Suspect]
     Active Substance: RITUXIMAB
     Indication: Diffuse large B-cell lymphoma
     Dosage: UNK, DRUG SEPARATE DOSAGE NUMBER:1
     Route: 050
     Dates: start: 20200401, end: 20200801
  2. VENETOCLAX [Suspect]
     Active Substance: VENETOCLAX
     Indication: Diffuse large B-cell lymphoma
     Dosage: UNK, DRUG SEPARATE DOSAGE NUMBER:1
     Route: 048
     Dates: start: 20220901, end: 20230605
  3. VINCRISTINE [Suspect]
     Active Substance: VINCRISTINE
     Indication: Diffuse large B-cell lymphoma
     Dosage: UNK, DRUG SEPARATE DOSAGE NUMBER:1
     Route: 050
     Dates: start: 20200401, end: 20200801
  4. PREDNISONE [Suspect]
     Active Substance: PREDNISONE
     Indication: Diffuse large B-cell lymphoma
     Dosage: UNK, DRUG SEPARATE DOSAGE NUMBER:1
     Route: 050
     Dates: start: 20200401, end: 20200801
  5. CYCLOPHOSPHAMIDE [Suspect]
     Active Substance: CYCLOPHOSPHAMIDE
     Indication: Diffuse large B-cell lymphoma
     Dosage: UNK
     Route: 050
  6. IBRUTINIB [Suspect]
     Active Substance: IBRUTINIB
     Indication: Diffuse large B-cell lymphoma
     Dosage: UNK, DRUG SEPARATE DOSAGE NUMBER:1
     Route: 048
     Dates: start: 20210901, end: 20220901
  7. IBRUTINIB [Suspect]
     Active Substance: IBRUTINIB
     Dosage: UNK, DRUG SEPARATE DOSAGE NUMBER:1
     Route: 048
     Dates: start: 20220901, end: 20230605
  8. DOXORUBICIN [Suspect]
     Active Substance: DOXORUBICIN
     Indication: Diffuse large B-cell lymphoma
     Dosage: UNK, DRUG SEPARATE DOSAGE NUMBER:1
     Route: 050
     Dates: start: 20200401, end: 20200801

REACTIONS (1)
  - Lymphoma [Not Recovered/Not Resolved]
